FAERS Safety Report 6045338-X (Version None)
Quarter: 2009Q1

REPORT INFORMATION
  Report Type: 
  Country: None (occurrence: None)
  Receive Date: 20090121
  Receipt Date: 20090108
  Transmission Date: 20090719
  Serious: Yes (Other)
  Sender: FDA-Public Use
  Company Number: FR-BAYER-200911053GPV

PATIENT
  Age: 64 Year
  Sex: Female
  Weight: 70 kg

DRUGS (1)
  1. NEXAVAR [Suspect]
     Indication: ANGIOSARCOMA
     Route: 048
     Dates: start: 20081219, end: 20081229

REACTIONS (3)
  - HAEMORRHAGE [None]
  - RASH PAPULAR [None]
  - SKIN NECROSIS [None]
